FAERS Safety Report 9248111 (Version 1)
Quarter: 2013Q2

REPORT INFORMATION
  Report Type: Spontaneous
  Country: US (occurrence: US)
  Receive Date: 20130423
  Receipt Date: 20130423
  Transmission Date: 20140414
  Serious: No
  Sender: FDA-Public Use
  Company Number: US-PFIZER INC-2013124549

PATIENT
  Age: 9 Year
  Sex: Female

DRUGS (2)
  1. ZARONTIN [Suspect]
     Indication: CONVULSION
     Dosage: UNK
  2. TRILEPTAL [Suspect]
     Indication: CONVULSION
     Dosage: UNK

REACTIONS (3)
  - Eye pain [Unknown]
  - Rash [Unknown]
  - Fatigue [Unknown]
